FAERS Safety Report 11766896 (Version 1)
Quarter: 2015Q4

REPORT INFORMATION
  Report Type: Spontaneous
  Country: US (occurrence: US)
  Receive Date: 20151123
  Receipt Date: 20151123
  Transmission Date: 20160304
  Serious: Yes (Other)
  Sender: FDA-Public Use
  Company Number: US-ELI_LILLY_AND_COMPANY-US201511006222

PATIENT
  Sex: Female

DRUGS (1)
  1. PROZAC [Suspect]
     Active Substance: FLUOXETINE HYDROCHLORIDE
     Indication: PRODUCT USED FOR UNKNOWN INDICATION
     Route: 065

REACTIONS (7)
  - Lymphadenopathy [Unknown]
  - Maternal exposure timing unspecified [Unknown]
  - Blood carbon monoxide increased [Unknown]
  - Premature labour [Unknown]
  - Urinary tract infection [Unknown]
  - Sinusitis [Unknown]
  - Bronchitis [Unknown]
